FAERS Safety Report 5185749-8 (Version None)
Quarter: 2006Q4

REPORT INFORMATION
  Report Type: 
  Country: None (occurrence: None)
  Receive Date: 20061220
  Receipt Date: 20060907
  Transmission Date: 20070319
  Serious: No
  Sender: FDA-Public Use
  Company Number: US-GLAXOSMITHKLINE-A0619376A

PATIENT
  Age: 59 Year

DRUGS (1)
  1. NICODERM CQ [Suspect]
     Dates: start: 20060902

REACTIONS (4)
  - DEPRESSION [None]
  - INTENTIONAL DRUG MISUSE [None]
  - NERVOUSNESS [None]
  - NICOTINE DEPENDENCE [None]
